FAERS Safety Report 5926513-9 (Version None)
Quarter: 2008Q4

REPORT INFORMATION
  Report Type: 
  Country: None (occurrence: None)
  Receive Date: 20081022
  Receipt Date: 20081016
  Transmission Date: 20090506
  Serious: Yes (Other)
  Sender: FDA-Public Use
  Company Number: US-ELI_LILLY_AND_COMPANY-US200810004173

PATIENT
  Sex: Male

DRUGS (4)
  1. HUMULIN 70/30 [Suspect]
     Indication: DIABETES MELLITUS
     Dosage: 75 U, EACH MORNING
     Dates: start: 19880101
  2. HUMULIN 70/30 [Suspect]
     Dosage: 30 U, EACH EVENING
  3. HUMULIN 70/30 [Suspect]
     Dosage: UNK, AS NEEDED
  4. HUMALOG [Suspect]

REACTIONS (10)
  - BLOOD GLUCOSE INCREASED [None]
  - DRUG INEFFECTIVE [None]
  - FLUID OVERLOAD [None]
  - GASTROINTESTINAL DISORDER [None]
  - INSOMNIA [None]
  - NERVOUS SYSTEM DISORDER [None]
  - PERITONITIS [None]
  - PRODUCT QUALITY ISSUE [None]
  - RENAL FAILURE [None]
  - STRESS [None]
